FAERS Safety Report 5944353-1 (Version None)
Quarter: 2008Q4

REPORT INFORMATION
  Report Type: 
  Country: None (occurrence: None)
  Receive Date: 20081107
  Receipt Date: 20081031
  Transmission Date: 20090506
  Serious: Yes (Other)
  Sender: FDA-Public Use
  Company Number: IL-RANBAXY-2008RR-19067

PATIENT
  Sex: Female

DRUGS (1)
  1. FLUOXETINE [Suspect]
     Dosage: 30 MG, QD
     Route: 015

REACTIONS (2)
  - DRUG EXPOSURE DURING PREGNANCY [None]
  - ELECTROCARDIOGRAM QT PROLONGED [None]
